FAERS Safety Report 10061042 (Version 1)
Quarter: 2014Q2

REPORT INFORMATION
  Report Type: Spontaneous
  Country: US (occurrence: US)
  Receive Date: 20140405
  Receipt Date: 20140405
  Transmission Date: 20141212
  Serious: Yes (Other)
  Sender: FDA-Public Use
  Company Number: US-ABBVIE-14P-163-1218752-00

PATIENT
  Sex: Female

DRUGS (4)
  1. SYNTHROID [Suspect]
     Indication: PRODUCT USED FOR UNKNOWN INDICATION
     Dates: start: 1985
  2. LEVOXYL [Suspect]
     Indication: PRODUCT USED FOR UNKNOWN INDICATION
     Dates: start: 2002
  3. LEVOXYL [Suspect]
     Dates: start: 2006
  4. TIROSINT [Suspect]
     Indication: PRODUCT USED FOR UNKNOWN INDICATION
     Dates: start: 201312

REACTIONS (9)
  - Neoplasm malignant [Unknown]
  - Hysterectomy [Unknown]
  - Alopecia [Unknown]
  - Malaise [Unknown]
  - Tooth loss [Unknown]
  - Temperature intolerance [Unknown]
  - Thyroiditis [Unknown]
  - Adverse drug reaction [Unknown]
  - Hypothyroidism [Unknown]
